FAERS Safety Report 9230480 (Version 1)
Quarter: 2013Q1

REPORT INFORMATION
  Report Type: Spontaneous
  Country: US (occurrence: None)
  Receive Date: 20121019
  Receipt Date: 20121019
  Transmission Date: 20140127
  Serious: No
  Sender: FDA-Public Use
  Company Number: 2012P1002724

PATIENT
  Age: 88 Year
  Sex: Female
  Weight: 58.97 kg

DRUGS (5)
  1. FENTANYL PATCH 25 MCG/HR (NO PREF. NAME) [Suspect]
     Indication: SPONDYLITIS
     Dosage: 1 PATCH X1 TDER
     Route: 062
     Dates: start: 20120115, end: 20120115
  2. MILK OF MAGNESIA [Concomitant]
  3. CITRACAL [Concomitant]
  4. COLACE [Concomitant]
  5. SUPPOSITORIES [Concomitant]

REACTIONS (3)
  - Insomnia [None]
  - Hallucination [None]
  - Restlessness [None]
